FAERS Safety Report 7778605-X (Version None)
Quarter: 2011Q3

REPORT INFORMATION
  Report Type: 
  Country: None (occurrence: None)
  Receive Date: 20110926
  Receipt Date: 20110916
  Transmission Date: 20111222
  Serious: Yes (Hospitalization)
  Sender: FDA-Public Use
  Company Number: US-BAYER-2011-087474

PATIENT
  Sex: Female

DRUGS (3)
  1. YAZ [Suspect]
     Dosage: UNK
     Dates: start: 20081001, end: 20090701
  2. DROSPIRENONE AND ETHINYL ESTRADIOL [Suspect]
     Dosage: UNK
     Dates: start: 20081001, end: 20090701
  3. YASMIN [Suspect]
     Dosage: UNK
     Dates: start: 20081001, end: 20090701

REACTIONS (5)
  - ANXIETY [None]
  - PAIN [None]
  - HEART INJURY [None]
  - INJURY [None]
  - MYOCARDIAL INFARCTION [None]
